FAERS Safety Report 4636865-8 (Version None)
Quarter: 2005Q2

REPORT INFORMATION
  Report Type: 
  Country: None (occurrence: None)
  Receive Date: 20050414
  Receipt Date: 20050401
  Transmission Date: 20051028
  Serious: No
  Sender: FDA-Public Use
  Company Number: 2005SE01450

PATIENT
  Age: 43 Year
  Sex: 0
  Weight: 74 kg

DRUGS (1)
  1. NEXIUM [Suspect]
     Indication: REFLUX OESOPHAGITIS
     Dosage: 20 MG QD PO
     Route: 048
     Dates: start: 20030601

REACTIONS (1)
  - OPTIC NEURITIS [None]
